FAERS Safety Report 6933568-1 (Version None)
Quarter: 2010Q3

REPORT INFORMATION
  Report Type: 
  Country: None (occurrence: None)
  Receive Date: 20100817
  Receipt Date: 20100805
  Transmission Date: 20110219
  Serious: Yes (Other)
  Sender: FDA-Public Use
  Company Number: LTI2009A00103

PATIENT
  Age: 66 Year
  Sex: Male

DRUGS (1)
  1. ACTOPLUS MET [Suspect]
     Indication: TYPE 2 DIABETES MELLITUS
     Dosage: 2 TAB. (1 TAB.,2 IN 1 D) ORAL
     Route: 048
     Dates: start: 20071201, end: 20080101

REACTIONS (2)
  - DIABETES MELLITUS INADEQUATE CONTROL [None]
  - RENAL CANCER [None]
